FAERS Safety Report 4718866-4 (Version None)
Quarter: 2005Q3

REPORT INFORMATION
  Report Type: 
  Country: None (occurrence: None)
  Receive Date: 20050719
  Receipt Date: 20050712
  Transmission Date: 20060218
  Serious: Yes (Life-Threatening, Other)
  Sender: FDA-Public Use
  Company Number: USA-2005-0020649

PATIENT
  Age: 50 Year
  Sex: Male

DRUGS (2)
  1. OXYCONTIN [Suspect]
     Indication: PAIN
     Dosage: 60 MG, DAILY
     Dates: start: 20050101, end: 20050223
  2. LORTAB [Suspect]
     Dosage: 6 TABLET, DAILY

REACTIONS (7)
  - ARTHRITIS [None]
  - CARDIAC FAILURE [None]
  - CARDIAC TAMPONADE [None]
  - COMA [None]
  - PERICARDIAL EFFUSION [None]
  - RESPIRATORY FAILURE [None]
  - SEPSIS [None]
